FAERS Safety Report 4664781-4 (Version None)
Quarter: 2005Q2

REPORT INFORMATION
  Report Type: 
  Country: None (occurrence: None)
  Receive Date: 20050518
  Receipt Date: 20050412
  Transmission Date: 20051028
  Serious: Yes (Disabling)
  Sender: FDA-Public Use
  Company Number: PHEH2005US04272

PATIENT
  Age: 64 Year
  Sex: Female

DRUGS (27)
  1. GEMZAR [Concomitant]
     Indication: BREAST CANCER
     Dosage: WEEKLY - 3 ON AND ONE OFF
     Dates: start: 20000926, end: 20001204
  2. TAXOL [Concomitant]
     Indication: BREAST CANCER
     Dates: start: 20040101, end: 20040401
  3. TAXOL [Concomitant]
     Dates: start: 20040301, end: 20040401
  4. TAXOL [Concomitant]
     Dosage: WEEKLY 3 ON AND ONE OFF
     Dates: start: 20021001, end: 20030401
  5. HERCEPTIN [Concomitant]
     Indication: BREAST CANCER
     Dosage: 3 WEEKS ON AND ONE OFF
     Dates: start: 20031001, end: 20040101
  6. HERCEPTIN [Concomitant]
     Dates: start: 20040101, end: 20040401
  7. HERCEPTIN [Concomitant]
     Dosage: 1000 (UNSPEC.) ALT. W/ 1500 (UNSP.)X14 DAYS
     Dates: start: 20040301, end: 20040401
  8. HERCEPTIN [Concomitant]
     Dosage: WEEKLY 3 ON AND ONE OFF
     Dates: start: 20021001, end: 20030401
  9. HERCEPTIN [Concomitant]
     Dosage: EVERY 3 WEEKS
     Dates: start: 20050418
  10. FASLODEX [Concomitant]
     Indication: BREAST CANCER
     Dosage: 250 UKN EVERY 4 WEKS
     Route: 030
     Dates: start: 20030401, end: 20031001
  11. TAXOTERE [Concomitant]
     Indication: BREAST CANCER
     Dosage: 3 WEEKS ON AND ONE OFF
     Dates: start: 20031001, end: 20040101
  12. XELODA [Concomitant]
     Indication: BREAST CANCER
     Dates: start: 20040301, end: 20040401
  13. XELODA [Concomitant]
     Dosage: 1000 (UNSPEC.) ALT. W/ 1500 (UNSP.)X14 DAYS
     Dates: start: 20040401, end: 20041230
  14. FEMARA [Concomitant]
     Indication: BREAST CANCER
     Dosage: 2.5 MG, QD
     Dates: start: 20050418
  15. PERCOCET [Concomitant]
     Indication: PAIN
     Dosage: 1 OR 2 EVERY 4-6 HOURS PRN
     Dates: start: 20040101
  16. PAXIL [Concomitant]
     Indication: DEPRESSION
     Dosage: 20 MG, QD
     Route: 048
     Dates: start: 19990101
  17. VITAMIN D [Concomitant]
     Indication: HYPOVITAMINOSIS
     Dosage: 1000 IU, QD
     Dates: start: 20041101
  18. NEURONTIN [Concomitant]
     Indication: NEUROPATHY
     Dosage: 300 MG, BID
     Route: 048
     Dates: start: 20041101
  19. FLUOROURACIL [Concomitant]
     Indication: BREAST CANCER
     Dosage: EVERY 3 WEEKS X 6
     Dates: start: 19980629, end: 19981012
  20. FLUOROURACIL [Concomitant]
     Dosage: 3 WEEKS OFF ONE ON
     Dates: start: 20010719, end: 20000901
  21. LEUCOVORIN CALCIUM [Concomitant]
     Indication: BREAST CANCER
     Dosage: EVERY 3 WEEKS X 6
     Dates: start: 19980629, end: 19981012
  22. LEUCOVORIN CALCIUM [Concomitant]
     Dosage: 3 WEEKS ON AND ONE OFF
     Dates: start: 20010719, end: 20000901
  23. ADRIAMYCIN PFS [Concomitant]
     Indication: BREAST CANCER
     Dosage: EVERY 3 WEEKS X 6
     Dates: start: 19980629, end: 19981012
  24. TAMOXIFEN [Concomitant]
     Indication: BREAST CANCER
     Dosage: 20 MG, QD
     Dates: start: 19981130, end: 20000616
  25. ARIMIDEX [Concomitant]
     Indication: BREAST CANCER
     Dosage: 1 MG, QD
     Dates: start: 20000610, end: 20000719
  26. ZOMETA [Suspect]
     Indication: BREAST CANCER
     Dosage: 4 MG EVERY 4 WEEKS
     Dates: end: 20040713
  27. STEROIDS NOS [Concomitant]

REACTIONS (5)
  - BONE DISORDER [None]
  - BONE EROSION [None]
  - FEMUR FRACTURE [None]
  - FRACTURE MALUNION [None]
  - VITAMIN D DEFICIENCY [None]
